FAERS Safety Report 24444586 (Version 2)
Quarter: 2024Q4

REPORT INFORMATION
  Report Type: Report from Study
  Country: US (occurrence: US)
  Receive Date: 20241016
  Receipt Date: 20241017
  Transmission Date: 20250114
  Serious: No
  Sender: ROCHE
  Company Number: US-ROCHE-2831214

PATIENT
  Age: 21 Year
  Sex: Male

DRUGS (4)
  1. RITUXAN [Suspect]
     Active Substance: RITUXIMAB
     Indication: Encephalitis
     Dosage: THEN 1000 MG EVERY 6 MONTHS THEREAFTER?DISPENSE 2: 500 MG DOSE?LAST DOSE WAS GIVEN ON 14/SEP/2020
     Route: 041
     Dates: start: 20240304
  2. RITUXAN [Suspect]
     Active Substance: RITUXIMAB
     Indication: Encephalomyelitis
  3. CLOBETASOL PROPIONATE [Concomitant]
     Active Substance: CLOBETASOL PROPIONATE
  4. BARACLUDE [Concomitant]
     Active Substance: ENTECAVIR

REACTIONS (2)
  - Off label use [Unknown]
  - No adverse event [Unknown]
